FAERS Safety Report 7328615-1 (Version None)
Quarter: 2011Q1

REPORT INFORMATION
  Report Type: 
  Country: None (occurrence: None)
  Receive Date: 20110225
  Receipt Date: 20110225
  Transmission Date: 20110831
  Serious: Yes (Life-Threatening, Hospitalization)
  Sender: FDA-Public Use
  Company Number: None

PATIENT
  Age: 12 Year
  Sex: Female
  Weight: 29.5 kg

DRUGS (1)
  1. TIGECYCLINE [Suspect]
     Indication: MYCOBACTERIUM ABSCESSUS INFECTION
     Dosage: 15 MG, PLAN TO INCREASE TO 30 MG Q12H IV
     Route: 042
     Dates: start: 20110214

REACTIONS (1)
  - PANCREATITIS [None]
